FAERS Safety Report 5658736-0 (Version None)
Quarter: 2008Q1

REPORT INFORMATION
  Report Type: 
  Country: None (occurrence: None)
  Receive Date: 20080310
  Receipt Date: 20070406
  Transmission Date: 20080703
  Serious: No
  Sender: FDA-Public Use
  Company Number: US-BAYER-200711052BCC

PATIENT
  Sex: Female

DRUGS (1)
  1. ALEVE [Suspect]
     Indication: TOOTHACHE
     Dosage: TOTAL DAILY DOSE: 440 MG  UNIT DOSE: 220 MG
     Route: 048

REACTIONS (5)
  - BLISTER [None]
  - ORAL MUCOSAL ERUPTION [None]
  - SKIN HYPERTROPHY [None]
  - SWELLING FACE [None]
  - TONGUE ULCERATION [None]
